FAERS Safety Report 6651540-6 (Version None)
Quarter: 2010Q1

REPORT INFORMATION
  Report Type: 
  Country: None (occurrence: None)
  Receive Date: 20100325
  Receipt Date: 20100319
  Transmission Date: 20100710
  Serious: Yes (Other)
  Sender: FDA-Public Use
  Company Number: A0851165A

PATIENT
  Age: 71 Year
  Sex: Female

DRUGS (5)
  1. SEREVENT [Suspect]
     Indication: CHRONIC OBSTRUCTIVE PULMONARY DISEASE
     Dosage: 1PUFF TWICE PER DAY
     Route: 055
     Dates: start: 20100317
  2. FLOVENT [Suspect]
     Indication: CHRONIC OBSTRUCTIVE PULMONARY DISEASE
     Dosage: 2PUFF TWICE PER DAY
     Route: 055
     Dates: start: 20090301, end: 20091201
  3. NEXIUM [Concomitant]
  4. METOPROLOL [Concomitant]
  5. CRESTOR [Concomitant]

REACTIONS (5)
  - ARTHRALGIA [None]
  - CATARACT [None]
  - CORRECTIVE LENS USER [None]
  - MUSCULOSKELETAL PAIN [None]
  - VISUAL IMPAIRMENT [None]
